FAERS Safety Report 13267087 (Version 8)
Quarter: 2018Q2

REPORT INFORMATION
  Report Type: Spontaneous
  Country: US (occurrence: US)
  Receive Date: 20170224
  Receipt Date: 20180604
  Transmission Date: 20180711
  Serious: No
  Sender: FDA-Public Use
  Company Number: PHEH2017US005723

PATIENT
  Sex: Female
  Weight: 74.38 kg

DRUGS (2)
  1. ONDANSETRON. [Suspect]
     Active Substance: ONDANSETRON
     Indication: VOMITING IN PREGNANCY
     Dosage: 04 MG, Q6H
     Route: 048
     Dates: start: 201407, end: 201411
  2. ZOFRAN ODT [Suspect]
     Active Substance: ONDANSETRON HYDROCHLORIDE
     Indication: VOMITING IN PREGNANCY
     Dosage: 04 MG, Q6H
     Route: 048

REACTIONS (14)
  - Pain [Unknown]
  - Fibromyalgia [Unknown]
  - Product use in unapproved indication [Unknown]
  - Anxiety [Unknown]
  - Arthralgia [Unknown]
  - Emotional distress [Unknown]
  - Headache [Unknown]
  - Maternal exposure during pregnancy [Unknown]
  - Injury [Unknown]
  - Fatigue [Unknown]
  - Constipation [Unknown]
  - Anhedonia [Unknown]
  - Gastrooesophageal reflux disease [Unknown]
  - Synovial cyst [Unknown]
